FAERS Safety Report 7653083-X (Version None)
Quarter: 2011Q3

REPORT INFORMATION
  Report Type: 
  Country: None (occurrence: None)
  Receive Date: 20110803
  Receipt Date: 20110728
  Transmission Date: 20111222
  Serious: Yes (Other)
  Sender: FDA-Public Use
  Company Number: JP-AMGEN LTD.-JPNCT2010000245

PATIENT
  Age: 62 Year
  Sex: Female

DRUGS (4)
  1. DENOSUMAB [Suspect]
     Indication: METASTASES TO BONE
     Dosage: UNK UNK, Q4WK
     Route: 058
     Dates: start: 20070319, end: 20091216
  2. RINDERON VG [Concomitant]
     Indication: VAGINAL LESION
     Dosage: UNK
     Dates: start: 20091123, end: 20100109
  3. CAPECITABINE [Concomitant]
     Dosage: UNKNOWN
     Route: 065
     Dates: start: 20090317
  4. RINDERON VG [Concomitant]
     Indication: PRURITUS

REACTIONS (1)
  - ALVEOLAR OSTEITIS [None]
